FAERS Safety Report 16395327 (Version 2)
Quarter: 2019Q2

REPORT INFORMATION
  Report Type: Spontaneous
  Country: RU (occurrence: RU)
  Receive Date: 20190605
  Receipt Date: 20190613
  Transmission Date: 20190711
  Serious: Yes (Life-Threatening, Other)
  Sender: FDA-Public Use
  Company Number: RU-AMGEN-RUSSP2019085667

PATIENT
  Age: 31 Year
  Sex: Female

DRUGS (2)
  1. BLINCYTO [Suspect]
     Active Substance: BLINATUMOMAB
     Indication: ACUTE LYMPHOCYTIC LEUKAEMIA
     Dosage: UNK
     Route: 065
     Dates: start: 20180428, end: 20180429
  2. NILOTINIB [Concomitant]
     Active Substance: NILOTINIB
     Dosage: UNK

REACTIONS (8)
  - Therapy non-responder [Unknown]
  - Febrile neutropenia [Unknown]
  - Stomatitis [Unknown]
  - Anaemia [Unknown]
  - Chronic graft versus host disease in skin [Unknown]
  - Chronic graft versus host disease [Unknown]
  - Leukaemic infiltration extramedullary [Unknown]
  - Thrombocytopenia [Unknown]

NARRATIVE: CASE EVENT DATE: 2018
